FAERS Safety Report 6803719-8 (Version None)
Quarter: 2010Q2

REPORT INFORMATION
  Report Type: 
  Country: None (occurrence: None)
  Receive Date: 20100628
  Receipt Date: 20100618
  Transmission Date: 20101027
  Serious: Yes (Hospitalization)
  Sender: FDA-Public Use
  Company Number: FR-KINGPHARMUSA00001-K201000773

PATIENT
  Age: 73 Year
  Sex: Male

DRUGS (12)
  1. ALTACE [Suspect]
     Indication: HYPERTENSION
     Dosage: 1.25 MG, QD
     Route: 048
     Dates: start: 20100408, end: 20100415
  2. PREVISCAN [Suspect]
     Dosage: 20 MG, UNK
     Route: 048
     Dates: start: 20100412, end: 20100417
  3. PLAVIX [Suspect]
     Dosage: 75 MG, QD
     Route: 048
     Dates: start: 20100408, end: 20100419
  4. TEGELINE [Suspect]
     Indication: PERIPHERAL SENSORY NEUROPATHY
     Dosage: 10 G, TID
     Route: 042
     Dates: start: 20100416, end: 20100419
  5. LOVENOX [Suspect]
     Dosage: 4000 IU, UNK
     Route: 058
     Dates: start: 20100408, end: 20100419
  6. BACTRIM [Suspect]
     Indication: LUNG DISORDER
     Dosage: UNK
     Route: 048
     Dates: start: 20100409, end: 20100419
  7. KARDEGIC [Suspect]
     Dosage: 75 MG, QD
     Route: 048
     Dates: start: 20100408, end: 20100419
  8. CARDENSIEL [Concomitant]
  9. RISORDAN [Concomitant]
  10. CORTANCYL [Concomitant]
  11. TOPALGIC [Concomitant]
  12. INIPOMP [Concomitant]

REACTIONS (4)
  - EPISTAXIS [None]
  - PERIPHERAL SENSORIMOTOR NEUROPATHY [None]
  - PERIPHERAL SENSORY NEUROPATHY [None]
  - RENAL FAILURE CHRONIC [None]
